FAERS Safety Report 9241134 (Version 1)
Quarter: 2013Q1

REPORT INFORMATION
  Report Type: Spontaneous
  Country: US (occurrence: None)
  Receive Date: 20121120
  Receipt Date: 20121120
  Transmission Date: 20140127
  Serious: No
  Sender: FDA-Public Use
  Company Number: 1000038214

PATIENT
  Age: 6 Year
  Sex: Male

DRUGS (1)
  1. VIIBRYD [Suspect]
     Route: 048
     Dates: start: 20120827, end: 20120827

REACTIONS (1)
  - Accidental exposure to product [None]
